FAERS Safety Report 24537545 (Version 1)
Quarter: 2024Q4

REPORT INFORMATION
  Report Type: Report from Study
  Country: US (occurrence: US)
  Receive Date: 20241023
  Receipt Date: 20241023
  Transmission Date: 20250114
  Serious: Yes (Other)
  Sender: ABBVIE
  Company Number: US-ABBVIE-5864998

PATIENT
  Age: 52 Year
  Sex: Male

DRUGS (1)
  1. RINVOQ [Suspect]
     Active Substance: UPADACITINIB
     Indication: Psoriatic arthropathy
     Route: 048
     Dates: start: 20231027

REACTIONS (8)
  - Joint injury [Recovering/Resolving]
  - Frustration tolerance decreased [Recovering/Resolving]
  - Arthropod sting [Recovering/Resolving]
  - Stress [Recovering/Resolving]
  - Ligament rupture [Recovering/Resolving]
  - Urticaria [Recovering/Resolving]
  - Seasonal allergy [Not Recovered/Not Resolved]
  - Fall [Recovered/Resolved]

NARRATIVE: CASE EVENT DATE: 20240704
